FAERS Safety Report 13043081 (Version 1)
Quarter: 2016Q4

REPORT INFORMATION
  Report Type: Report from Study
  Country: None (occurrence: NL)
  Receive Date: 20161219
  Receipt Date: 20161219
  Transmission Date: 20170207
  Serious: Yes (Death)
  Sender: FDA-Public Use
  Company Number: NL-ABBVIE-16P-114-1815117-00

PATIENT
  Sex: Male

DRUGS (1)
  1. DUODOPA [Suspect]
     Active Substance: CARBIDOPA\LEVODOPA
     Indication: PARKINSON^S DISEASE
     Dosage: MORNING DOSE: 10.5, CONTINUOUS DOSE: 7.8, EXTRA DOSE: 4.0, NIGHT DOSE: 4.0-3.0
     Route: 050
     Dates: start: 20160218

REACTIONS (4)
  - Terminal state [Fatal]
  - Hallucination [Unknown]
  - Condition aggravated [Fatal]
  - Hypophagia [Fatal]
